FAERS Safety Report 8496431-3 (Version None)
Quarter: 2012Q3

REPORT INFORMATION
  Report Type: 
  Country: None (occurrence: None)
  Receive Date: 20120709
  Receipt Date: 20120628
  Transmission Date: 20120928
  Serious: No
  Sender: FDA-Public Use
  Company Number: US-PFIZER INC-2012146801

PATIENT

DRUGS (2)
  1. NEOSPORIN [Suspect]
     Dosage: UNK
  2. NEOSPORIN [Suspect]
     Dosage: UNK
     Route: 061

REACTIONS (2)
  - RASH [None]
  - DERMATITIS ALLERGIC [None]
